FAERS Safety Report 7896694-9 (Version None)
Quarter: 2011Q4

REPORT INFORMATION
  Report Type: 
  Country: None (occurrence: None)
  Receive Date: 20111107
  Receipt Date: 20111026
  Transmission Date: 20120403
  Serious: No
  Sender: FDA-Public Use
  Company Number: US-BIOGENIDEC-2011BI041209

PATIENT
  Sex: Female

DRUGS (1)
  1. TYSABRI [Suspect]
     Indication: MULTIPLE SCLEROSIS
     Route: 042
     Dates: start: 20090421

REACTIONS (6)
  - CARDIAC STRESS TEST ABNORMAL [None]
  - STRESS [None]
  - DYSPLASIA [None]
  - ECHOCARDIOGRAM ABNORMAL [None]
  - MEMORY IMPAIRMENT [None]
  - CYST [None]
